FAERS Safety Report 20361383 (Version 1)
Quarter: 2022Q1

REPORT INFORMATION
  Report Type: Spontaneous
  Country: CN (occurrence: CN)
  Receive Date: 20220121
  Receipt Date: 20220121
  Transmission Date: 20220423
  Serious: Yes (Other)
  Sender: FDA-Public Use
  Company Number: CN-Merck Healthcare KGaA-9292796

PATIENT
  Age: 74 Year
  Sex: Male
  Weight: 66 kg

DRUGS (5)
  1. ERBITUX [Suspect]
     Active Substance: CETUXIMAB
     Indication: Colon cancer
     Dosage: 800 MG, UNK
     Route: 041
     Dates: start: 20211223
  2. ERBITUX [Suspect]
     Active Substance: CETUXIMAB
     Dosage: 800 MG, DAILY
     Route: 041
     Dates: start: 20220106, end: 20220106
  3. SODIUM CHLORIDE [Concomitant]
     Active Substance: SODIUM CHLORIDE
     Indication: Medication dilution
     Dosage: 400 ML, UNK
     Route: 041
     Dates: start: 20211223
  4. SODIUM CHLORIDE [Concomitant]
     Active Substance: SODIUM CHLORIDE
     Dosage: 100 ML, UNK
     Route: 041
     Dates: start: 20211223
  5. SODIUM CHLORIDE [Concomitant]
     Active Substance: SODIUM CHLORIDE
     Dosage: 400 ML, DAILY
     Route: 041
     Dates: start: 20220106, end: 20220106

REACTIONS (2)
  - Cardiomyopathy [Unknown]
  - Aspartate aminotransferase increased [Unknown]

NARRATIVE: CASE EVENT DATE: 20220106
